FAERS Safety Report 17823415 (Version 1)
Quarter: 2020Q2

REPORT INFORMATION
  Report Type: Spontaneous
  Country: US (occurrence: US)
  Receive Date: 20200526
  Receipt Date: 20200526
  Transmission Date: 20200714
  Serious: No
  Sender: FDA-Public Use
  Company Number: US-TOLMAR, INC.-20US021350

PATIENT
  Sex: Female

DRUGS (2)
  1. METRONIDAZOLE. [Suspect]
     Active Substance: METRONIDAZOLE
     Indication: RASH
     Dosage: UNK
     Route: 065
  2. METRONIDAZOLE. [Suspect]
     Active Substance: METRONIDAZOLE
     Indication: URTICARIA

REACTIONS (1)
  - Drug ineffective [Unknown]
